FAERS Safety Report 5245915-X (Version None)
Quarter: 2007Q1

REPORT INFORMATION
  Report Type: 
  Country: None (occurrence: None)
  Receive Date: 20070216
  Receipt Date: 20070208
  Transmission Date: 20070707
  Serious: Yes (Hospitalization)
  Sender: FDA-Public Use
  Company Number: 2007SP002460

PATIENT
  Age: 58 Year
  Sex: Male
  Weight: 48 kg

DRUGS (5)
  1. PEG-INTRON [Suspect]
     Indication: HEPATITIS C
     Dosage: 80MCG;QW;SC, 60MCG;QW;SC, 50MCG,QW;SC
     Route: 058
     Dates: start: 20050825, end: 20050901
  2. PEG-INTRON [Suspect]
     Indication: HEPATITIS C
     Dosage: 80MCG;QW;SC, 60MCG;QW;SC, 50MCG,QW;SC
     Route: 058
     Dates: start: 20050908, end: 20050908
  3. PEG-INTRON [Suspect]
     Indication: HEPATITIS C
     Dosage: 80MCG;QW;SC, 60MCG;QW;SC, 50MCG,QW;SC
     Route: 058
     Dates: start: 20050915, end: 20060728
  4. REBETOL [Suspect]
     Indication: HEPATITIS C
     Dosage: 600 MG,QD; PO, 400 MG;QD;PO
     Route: 048
     Dates: start: 20050825, end: 20050907
  5. REBETOL [Suspect]
     Indication: HEPATITIS C
     Dosage: 600 MG,QD; PO, 400 MG;QD;PO
     Route: 048
     Dates: start: 20050908, end: 20060803

REACTIONS (4)
  - ANAEMIA [None]
  - LIVER DISORDER [None]
  - NEUTROPHIL COUNT DECREASED [None]
  - WHITE BLOOD CELL COUNT DECREASED [None]
